FAERS Safety Report 8763866 (Version 2)
Quarter: 2012Q4

REPORT INFORMATION
  Report Type: Spontaneous
  Country: US (occurrence: None)
  Receive Date: 20120827
  Receipt Date: 20120906
  Transmission Date: 20130627
  Serious: Yes (Hospitalization)
  Sender: FDA-Public Use
  Company Number: 2012AP002582

PATIENT
  Age: 60 Year
  Sex: Female

DRUGS (1)
  1. LITHIUM CARBONATE CAPSULES [Suspect]
     Indication: BIPOLAR DISORDER

REACTIONS (2)
  - Hyperthyroidism [None]
  - Basedow^s disease [None]
